FAERS Safety Report 15772725 (Version 1)
Quarter: 2018Q4

REPORT INFORMATION
  Report Type: Spontaneous
  Country: US (occurrence: US)
  Receive Date: 20181228
  Receipt Date: 20181228
  Transmission Date: 20190205
  Serious: No
  Sender: FDA-Public Use
  Company Number: US-SA-2018SA395956

PATIENT
  Sex: Female

DRUGS (1)
  1. PRALUENT [Suspect]
     Active Substance: ALIROCUMAB
     Dosage: 75 MG, QOW
     Route: 058

REACTIONS (5)
  - Laryngitis [Recovered/Resolved]
  - Erythema [Recovered/Resolved]
  - Upper respiratory tract infection [Recovered/Resolved]
  - Condition aggravated [Recovered/Resolved]
  - Peripheral swelling [Recovered/Resolved]
